FAERS Safety Report 6943165-X (Version None)
Quarter: 2010Q3

REPORT INFORMATION
  Report Type: 
  Country: None (occurrence: None)
  Receive Date: 20100812
  Receipt Date: 20100803
  Transmission Date: 20110219
  Serious: Yes (Hospitalization)
  Sender: FDA-Public Use
  Company Number: 2010025866

PATIENT
  Age: 28 Year
  Sex: Female

DRUGS (1)
  1. RHO(D) IMMUNE GLOBULIN NOS [Suspect]
     Indication: PROPHYLAXIS AGAINST RH ISOIMMUNISATION
     Dosage: INRAMUSCULAR 300 UG/2 ML INTRAMUSCULAR
     Route: 030
     Dates: start: 20100216, end: 20100216

REACTIONS (8)
  - ASTHENIA [None]
  - BLOOD GLUCOSE DECREASED [None]
  - FLUSHING [None]
  - HYPOTENSION [None]
  - IMPAIRED WORK ABILITY [None]
  - MALAISE [None]
  - NAUSEA [None]
  - PRESYNCOPE [None]
